FAERS Safety Report 7754194-0 (Version None)
Quarter: 2011Q3

REPORT INFORMATION
  Report Type: 
  Country: None (occurrence: None)
  Receive Date: 20110915
  Receipt Date: 20110729
  Transmission Date: 20111222
  Serious: Yes (Other)
  Sender: FDA-Public Use
  Company Number: PHHO2011US14114

PATIENT
  Age: 53 Year
  Sex: Male
  Weight: 135.1 kg

DRUGS (8)
  1. ALPRAZOLAM [Concomitant]
     Dosage: 0.5 MG, DAILY
  2. BUMETANIDE [Concomitant]
     Dosage: 2 MG, DAILY
     Dates: start: 20110101
  3. DIOVAN [Suspect]
     Dosage: 10 MG, DAILY
     Dates: start: 20020401, end: 20090101
  4. LIPITOR [Suspect]
     Indication: CEREBROVASCULAR ACCIDENT
     Dosage: UNK UKN, UNK
     Dates: start: 20020401, end: 20090101
  5. ASPIRIN [Concomitant]
     Dosage: 81 MG, UNK
     Dates: start: 20020401
  6. NEXIUM [Concomitant]
     Dosage: 40 MG, DAILY
     Dates: start: 20100101
  7. PLAVIX [Concomitant]
     Dosage: 75 MG, DAILY
     Dates: start: 20020401
  8. FLUOXETINE [Concomitant]
     Dosage: 40 MG, DAILY
     Dates: start: 20070101

REACTIONS (5)
  - HIATUS HERNIA [None]
  - SLEEP APNOEA SYNDROME [None]
  - DIVERTICULITIS [None]
  - GASTROOESOPHAGEAL REFLUX DISEASE [None]
  - IRRITABLE BOWEL SYNDROME [None]
